FAERS Safety Report 10020030 (Version 1)
Quarter: 2014Q1

REPORT INFORMATION
  Report Type: Spontaneous
  Country: BR (occurrence: BR)
  Receive Date: 20140318
  Receipt Date: 20140318
  Transmission Date: 20141002
  Serious: Yes (Other)
  Sender: FDA-Public Use
  Company Number: BR-ELI_LILLY_AND_COMPANY-BR201403002129

PATIENT
  Age: 61 Year
  Sex: Male

DRUGS (5)
  1. HUMALOG [Suspect]
     Indication: TYPE 1 DIABETES MELLITUS
     Dosage: 10 IU, UNKNOWN
     Route: 058
     Dates: start: 2009
  2. HUMULIN N [Suspect]
     Indication: PRODUCT USED FOR UNKNOWN INDICATION
     Dosage: 10 IU, BID
     Route: 065
  3. HUMULIN N [Suspect]
     Dosage: 20 IU, QD
     Route: 058
  4. A.A.S. [Concomitant]
     Indication: PRODUCT USED FOR UNKNOWN INDICATION
     Dosage: UNK, UNKNOWN
     Route: 065
  5. CENTRUM                            /02217401/ [Concomitant]
     Indication: PRODUCT USED FOR UNKNOWN INDICATION
     Dosage: UNK UNK, UNKNOWN
     Route: 065

REACTIONS (4)
  - Ketoacidosis [Recovered/Resolved]
  - Wrong drug administered [Recovered/Resolved]
  - Drug dose omission [Recovered/Resolved]
  - Retching [Recovered/Resolved]
